FAERS Safety Report 24824012 (Version 3)
Quarter: 2025Q1

REPORT INFORMATION
  Report Type: Spontaneous
  Country: DE (occurrence: DE)
  Receive Date: 20250109
  Receipt Date: 20250124
  Transmission Date: 20250409
  Serious: Yes (Other)
  Sender: ASTELLAS
  Company Number: DE-ASTELLAS-2025-AER-000308

PATIENT
  Age: 51 Year
  Sex: Male

DRUGS (1)
  1. VESIKUR [Suspect]
     Active Substance: SOLIFENACIN SUCCINATE
     Indication: Hypertonic bladder
     Dosage: VESIKUR 5 MG 1X DAILY
     Route: 048
     Dates: start: 202404, end: 202412

REACTIONS (1)
  - Neuropathy peripheral [Not Recovered/Not Resolved]

NARRATIVE: CASE EVENT DATE: 20240701
